FAERS Safety Report 5015743-9 (Version None)
Quarter: 2006Q2

REPORT INFORMATION
  Report Type: 
  Country: None (occurrence: None)
  Receive Date: 20060525
  Receipt Date: 20060516
  Transmission Date: 20061013
  Serious: Yes (Life-Threatening)
  Sender: FDA-Public Use
  Company Number: 2006JP001385

PATIENT
  Age: 51 Year
  Sex: Female

DRUGS (14)
  1. PROGRAF [Suspect]
     Indication: LIVER TRANSPLANT
     Dosage: ORAL
     Route: 048
  2. STEROID (STEROID)  UNKNOWN [Suspect]
  3. MEDROL ACETATE [Concomitant]
  4. LANSOPRAZOLE [Concomitant]
  5. LASIX [Concomitant]
  6. DIAMOX [Concomitant]
  7. SULPERASON (CEFOPERAZONE, SULBACTAM) [Concomitant]
  8. STRONG NEO-MINOPHAGEN C (AMINOACETIC ACID, GLYCYRRHIZIC ACID, CYSTEINE [Concomitant]
  9. FUNGUARD (MICAFUNGIN) INJECTION [Concomitant]
  10. MEROPEN (MEROPENEM) INJECTION [Concomitant]
  11. VENOGLOBULIN [Concomitant]
  12. UNASYN S (AMPICILLIN SODIUM, SULBACTAM SODIUM) INJECTION [Concomitant]
  13. PHENOBAL INJECTION [Concomitant]
  14. PEG-INTRON [Concomitant]

REACTIONS (7)
  - CEREBRAL ARTERITIS [None]
  - CEREBROVASCULAR DISORDER [None]
  - COMMUNICATION DISORDER [None]
  - DISEASE RECURRENCE [None]
  - HEPATITIS C VIRUS [None]
  - LIVER TRANSPLANT [None]
  - VASCULITIS CEREBRAL [None]
